FAERS Safety Report 21675988 (Version 3)
Quarter: 2022Q4

REPORT INFORMATION
  Report Type: Spontaneous
  Country: US (occurrence: US)
  Receive Date: 20221202
  Receipt Date: 20221207
  Transmission Date: 20230113
  Serious: No
  Sender: FDA-Public Use
  Company Number: US-NOVOPROD-880921

PATIENT
  Sex: Male

DRUGS (3)
  1. NOVOLIN N [Suspect]
     Active Substance: INSULIN HUMAN
     Indication: Type 2 diabetes mellitus
     Dosage: 95 IU, QD (35 UNITS IN THE MORNING, 30 UNITS AT LUNCH, AND 30 AT NIGHT)
     Route: 058
  2. NOVOLIN R [Suspect]
     Active Substance: INSULIN HUMAN
     Indication: Type 2 diabetes mellitus
     Dosage: UNK
     Route: 058
     Dates: end: 202109
  3. NOVOLIN 70/30 [Suspect]
     Active Substance: INSULIN HUMAN
     Indication: Type 2 diabetes mellitus
     Dosage: UNK
     Route: 058
     Dates: end: 202112

REACTIONS (2)
  - Muscle tightness [Recovering/Resolving]
  - Renal pain [Recovering/Resolving]
